FAERS Safety Report 16582964 (Version 14)
Quarter: 2020Q1

REPORT INFORMATION
  Report Type: Spontaneous
  Country: CA (occurrence: CA)
  Receive Date: 20190717
  Receipt Date: 20200327
  Transmission Date: 20200409
  Serious: Yes (Hospitalization, Other)
  Sender: FDA-Public Use
  Company Number: CA-CELLTRION INC.-2019CA019022

PATIENT

DRUGS (18)
  1. INFLECTRA [Suspect]
     Active Substance: INFLIXIMAB-DYYB
     Dosage: 500 MG, WEEKS 0, 2, 6, THEN EVERY 4 WEEKS
     Route: 042
     Dates: start: 20190819
  2. INFLECTRA [Suspect]
     Active Substance: INFLIXIMAB-DYYB
     Dosage: 500 MG, WEEKS 0, 2, 6, THEN EVERY 4 WEEKS
     Route: 042
     Dates: start: 20200212
  3. INFLECTRA [Suspect]
     Active Substance: INFLIXIMAB-DYYB
     Dosage: 500 MG, WEEKS 0, 2, 6, THEN EVERY 4 WEEKS
     Route: 042
     Dates: start: 20191016
  4. INFLECTRA [Suspect]
     Active Substance: INFLIXIMAB-DYYB
     Dosage: 500 MG, WEEKS 0, 2, 6, THEN EVERY 4 WEEKS
     Route: 042
     Dates: start: 20200311
  5. MIRENA [Concomitant]
     Active Substance: LEVONORGESTREL
     Dosage: UNK
     Route: 015
  6. INFLECTRA [Suspect]
     Active Substance: INFLIXIMAB-DYYB
     Dosage: 400 MG, WEEKS 0, 2, 6, THEN EVERY 8 WEEKS
     Route: 042
     Dates: start: 20190509
  7. INFLECTRA [Suspect]
     Active Substance: INFLIXIMAB-DYYB
     Dosage: 400 MG, WEEKS 0, 2, 6, THEN EVERY 8 WEEKS
     Route: 042
     Dates: start: 20190212
  8. INFLECTRA [Suspect]
     Active Substance: INFLIXIMAB-DYYB
     Indication: CROHN^S DISEASE
     Dosage: 400 MG, WEEKS 0, 2, 6, THEN EVERY 8 WEEKS
     Route: 042
     Dates: start: 20190128, end: 20190509
  9. INFLECTRA [Suspect]
     Active Substance: INFLIXIMAB-DYYB
     Dosage: 500 MG, WEEKS 0, 2, 6, THEN EVERY 4 WEEKS
     Route: 042
     Dates: start: 20190917
  10. INFLECTRA [Suspect]
     Active Substance: INFLIXIMAB-DYYB
     Dosage: 500 MG, WEEKS 0, 2, 6, THEN EVERY 4 WEEKS
     Route: 042
     Dates: start: 20191121
  11. INFLECTRA [Suspect]
     Active Substance: INFLIXIMAB-DYYB
     Dosage: 500 MG, WEEKS 0, 2, 6, THEN EVERY 4 WEEKS
     Route: 042
     Dates: start: 20190722
  12. INFLECTRA [Suspect]
     Active Substance: INFLIXIMAB-DYYB
     Dosage: 500 MG, WEEKS 0, 2, 6, THEN EVERY 4 WEEKS
     Route: 042
     Dates: start: 20191218
  13. INFLECTRA [Suspect]
     Active Substance: INFLIXIMAB-DYYB
     Dosage: 500 MG, WEEKS 0, 2, 6, THEN EVERY 4 WEEKS
     Route: 042
     Dates: start: 20200115
  14. PREDNISONE. [Concomitant]
     Active Substance: PREDNISONE
     Dosage: 30MG F2W (FOR 2 WEEKS) TAPER 5 MG WEEKLY
     Route: 065
     Dates: start: 20181220
  15. INFLECTRA [Suspect]
     Active Substance: INFLIXIMAB-DYYB
     Dosage: 400 MG, WEEKS 0, 2, 6, THEN EVERY 8 WEEKS
     Route: 042
     Dates: start: 20190314
  16. INFLECTRA [Suspect]
     Active Substance: INFLIXIMAB-DYYB
     Dosage: 500 MG, WEEKS 0, 2, 6, THEN EVERY 4 WEEKS (RE-INDUCTION)
     Route: 042
     Dates: start: 20190706
  17. INFLECTRA [Suspect]
     Active Substance: INFLIXIMAB-DYYB
     Dosage: 500 MG, WEEKS 0, 2, 6, THEN EVERY 4 WEEKS
     Route: 042
     Dates: start: 20200212
  18. METHOTREXATE. [Concomitant]
     Active Substance: METHOTREXATE
     Dosage: WEEKLY(ON FRIDAYS)
     Route: 048
     Dates: start: 201907

REACTIONS (34)
  - Condition aggravated [Not Recovered/Not Resolved]
  - Rash [Recovered/Resolved]
  - Vomiting [Recovering/Resolving]
  - Cough [Recovering/Resolving]
  - Menstrual disorder [Unknown]
  - Secretion discharge [Not Recovered/Not Resolved]
  - Stress [Unknown]
  - Diarrhoea [Recovering/Resolving]
  - Myalgia [Recovering/Resolving]
  - Food poisoning [Recovering/Resolving]
  - Off label use [Unknown]
  - Oropharyngeal pain [Not Recovered/Not Resolved]
  - Nausea [Recovering/Resolving]
  - Drug level below therapeutic [Unknown]
  - Infusion site pruritus [Recovered/Resolved]
  - Viral infection [Unknown]
  - Skin laceration [Unknown]
  - Hypersensitivity [Not Recovered/Not Resolved]
  - Fatigue [Recovering/Resolving]
  - Dizziness [Unknown]
  - Sneezing [Recovered/Resolved]
  - Sinusitis [Recovered/Resolved]
  - Muscle spasms [Unknown]
  - Mouth ulceration [Unknown]
  - Body temperature increased [Unknown]
  - Abdominal pain [Unknown]
  - Haemorrhage [Unknown]
  - Nasopharyngitis [Not Recovered/Not Resolved]
  - Rhinorrhoea [Not Recovered/Not Resolved]
  - Upper-airway cough syndrome [Unknown]
  - Dizziness [Unknown]
  - Malaise [Unknown]
  - Antibody test positive [Unknown]
  - Urinary tract infection [Unknown]

NARRATIVE: CASE EVENT DATE: 201904
